FAERS Safety Report 24952055 (Version 3)
Quarter: 2025Q1

REPORT INFORMATION
  Report Type: Report from Study
  Country: KR (occurrence: KR)
  Receive Date: 20250210
  Receipt Date: 20250228
  Transmission Date: 20250408
  Serious: Yes (Other)
  Sender: ABBVIE
  Company Number: KR-ABBVIE-6119923

PATIENT
  Age: 56 Year
  Sex: Female
  Weight: 55 kg

DRUGS (5)
  1. HUMIRA [Suspect]
     Active Substance: ADALIMUMAB
     Indication: Uveitis
     Route: 058
     Dates: start: 20240826, end: 20240826
  2. HUMIRA [Suspect]
     Active Substance: ADALIMUMAB
     Dosage: FORM STRENGTH 40 MILLIGRAM
     Route: 058
     Dates: start: 20240902, end: 20250120
  3. MYCOPHENOLATE MOFETIL [Concomitant]
     Active Substance: MYCOPHENOLATE MOFETIL
     Indication: Uveitis
     Dosage: MY-REPT TAB. 500MG?1 DOSAGE FORM
     Route: 048
  4. GASTER [Concomitant]
     Active Substance: FAMOTIDINE
     Indication: Antacid therapy
     Dosage: GASTER TABET?20 MILLIGRAM
     Route: 048
     Dates: start: 20250204
  5. Solondo [Concomitant]
     Indication: Eye inflammation
     Dosage: SOLONDO TABLET: 05 MILLIGRAM
     Route: 048
     Dates: start: 20250204

REACTIONS (3)
  - Necrotising retinitis [Recovering/Resolving]
  - Vision blurred [Not Recovered/Not Resolved]
  - Eye infection toxoplasmal [Recovering/Resolving]

NARRATIVE: CASE EVENT DATE: 20250101
